FAERS Safety Report 8571632 (Version 10)
Quarter: 2014Q1

REPORT INFORMATION
  Report Type: Spontaneous
  Country: US (occurrence: US)
  Receive Date: 20120521
  Receipt Date: 20140212
  Transmission Date: 20141002
  Serious: Yes (Hospitalization, Disabling, Other)
  Sender: FDA-Public Use
  Company Number: US-009507513-1205USA02826

PATIENT
  Sex: Female

DRUGS (3)
  1. FOSAMAX [Suspect]
     Indication: OSTEOPOROSIS
     Dosage: 70 MG, UNK
     Route: 048
     Dates: start: 2000, end: 2005
  2. ALENDRONATE SODIUM [Suspect]
     Indication: OSTEOPOROSIS
     Dosage: 70 MG, UNK
     Route: 048
     Dates: start: 20080912, end: 2011
  3. CALCIUM (UNSPECIFIED) [Concomitant]
     Indication: OSTEOPOROSIS
     Dosage: 1500 MG, QD

REACTIONS (106)
  - Breast mass [Unknown]
  - Chest pain [Unknown]
  - Migraine [Unknown]
  - Depression [Unknown]
  - Anxiety disorder [Unknown]
  - Pain [Not Recovered/Not Resolved]
  - Upper limb fracture [Unknown]
  - Overdose [Unknown]
  - Poisoning [Unknown]
  - Complex regional pain syndrome [Unknown]
  - Pelvic inflammatory disease [Unknown]
  - Fatigue [Unknown]
  - Eye discharge [Unknown]
  - Haemoptysis [Unknown]
  - Sputum increased [Unknown]
  - Dyspnoea [Unknown]
  - Wheezing [Unknown]
  - Pollakiuria [Unknown]
  - Haematuria [Unknown]
  - Fall [Unknown]
  - Paraesthesia [Unknown]
  - Tremor [Unknown]
  - Sensory level abnormal [Unknown]
  - Speech disorder [Unknown]
  - Muscular weakness [Unknown]
  - Polydipsia [Unknown]
  - Increased tendency to bruise [Unknown]
  - Haemorrhagic diathesis [Unknown]
  - Substance abuse [Unknown]
  - Acrochordon excision [Unknown]
  - Incision site haematoma [Unknown]
  - Bursitis [Unknown]
  - Scoliosis [Unknown]
  - Oropharyngeal pain [Unknown]
  - Amnesia [Unknown]
  - Breast disorder [Unknown]
  - Breast tenderness [Unknown]
  - Insomnia [Unknown]
  - Skin exfoliation [Unknown]
  - Breast disorder [Unknown]
  - Limb operation [Unknown]
  - Contusion [Unknown]
  - Haematemesis [Unknown]
  - Alcohol abuse [Unknown]
  - Hiatus hernia [Unknown]
  - Impaired gastric emptying [Unknown]
  - Fall [Unknown]
  - Rib fracture [Unknown]
  - Abdominal adhesions [Unknown]
  - Back injury [Unknown]
  - Myofascial pain syndrome [Unknown]
  - Intervertebral disc degeneration [Unknown]
  - Fracture [Unknown]
  - Fall [Unknown]
  - Ligament sprain [Unknown]
  - Vertebral foraminal stenosis [Unknown]
  - Intervertebral disc disorder [Unknown]
  - Malaise [Unknown]
  - Asthenia [Unknown]
  - Pyrexia [Unknown]
  - Muscle spasms [Unknown]
  - Drug ineffective [Unknown]
  - Oesophageal obstruction [Unknown]
  - Dysphagia [Unknown]
  - Abdominal pain [Unknown]
  - Dizziness [Unknown]
  - Nausea [Unknown]
  - Abdominal pain [Unknown]
  - Arthralgia [Unknown]
  - Vomiting [Unknown]
  - Abdominal pain [Unknown]
  - Arthralgia [Unknown]
  - Back pain [Unknown]
  - Constipation [Unknown]
  - Diarrhoea [Unknown]
  - Myalgia [Unknown]
  - Arthralgia [Unknown]
  - Arthralgia [Unknown]
  - Pain in extremity [Unknown]
  - Neck pain [Unknown]
  - Musculoskeletal pain [Unknown]
  - Nausea [Unknown]
  - Vomiting [Unknown]
  - Femur fracture [Unknown]
  - Open reduction of fracture [Unknown]
  - Femur fracture [Not Recovered/Not Resolved]
  - Hip fracture [Unknown]
  - Convulsion [Unknown]
  - Gastric bypass [Unknown]
  - Spinal fracture [Unknown]
  - Stress fracture [Not Recovered/Not Resolved]
  - Grand mal convulsion [Unknown]
  - Spinal compression fracture [Unknown]
  - Drug withdrawal convulsions [Unknown]
  - Loss of consciousness [Unknown]
  - Breast prosthesis implantation [Unknown]
  - Angina pectoris [Unknown]
  - Low turnover osteopathy [Not Recovered/Not Resolved]
  - Osteoporosis [Not Recovered/Not Resolved]
  - Humerus fracture [Unknown]
  - Cholecystectomy [Unknown]
  - Abdominal hernia repair [Unknown]
  - Cholecystitis chronic [Not Recovered/Not Resolved]
  - Cholelithiasis [Unknown]
  - Hernia [Unknown]
  - Gallbladder pain [Recovered/Resolved]
